FAERS Safety Report 6173874-4 (Version None)
Quarter: 2009Q2

REPORT INFORMATION
  Report Type: 
  Country: None (occurrence: None)
  Receive Date: 20090428
  Receipt Date: 20090317
  Transmission Date: 20091009
  Serious: Yes (Life-Threatening)
  Sender: FDA-Public Use
  Company Number: 2009030092

PATIENT
  Age: 63 Year
  Sex: Male

DRUGS (3)
  1. VOLUVEN [Suspect]
     Indication: VASCULAR GRAFT
     Dosage: INTRAVENOUS (NOT OTHERWIS
     Route: 042
     Dates: start: 20080822
  2. PROPOFOL (MANUFACTURER UNKNOWN) IPROPOFOL (PROPOFOL) [Suspect]
     Indication: VASCULAR GRAFT
     Dosage: INTRAVENOUS (NOT OTHERWISE SPECIFIED)
     Route: 042
     Dates: start: 20080822
  3. NIMBEX (CISATRACURIUM BESILATE) (CISATRACURIUM BESILATE) [Concomitant]

REACTIONS (1)
  - VASOPLEGIA SYNDROME [None]
